FAERS Safety Report 7610520-4 (Version None)
Quarter: 2011Q3

REPORT INFORMATION
  Report Type: 
  Country: None (occurrence: None)
  Receive Date: 20110715
  Receipt Date: 20110125
  Transmission Date: 20111222
  Serious: Yes (Hospitalization, Other)
  Sender: FDA-Public Use
  Company Number: US-BAYER-200841773NA

PATIENT
  Age: 79 Year
  Sex: Female
  Weight: 77.098 kg

DRUGS (13)
  1. TRASYLOL [Suspect]
     Indication: AORTIC VALVE REPLACEMENT
  2. TRASYLOL [Suspect]
     Indication: CARDIAC ARREST
  3. PREVACID [Concomitant]
     Dosage: 30 MG, QD
  4. PROTAMINE SULFATE [Concomitant]
     Dosage: 300 MG, UNK
     Route: 042
     Dates: start: 20050222
  5. NITROGLYCERIN [Concomitant]
     Dosage: UNK
     Route: 042
     Dates: start: 20050222
  6. SKELAXIN [Concomitant]
     Dosage: 800 MG, BID
     Route: 048
  7. ACETYLSALICYLIC ACID SRT [Concomitant]
     Dosage: 81 MG, QD
     Dates: end: 20050214
  8. TRASYLOL [Suspect]
     Indication: CORONARY ARTERY BYPASS
     Dosage: 1 ML, TEST DOSE
     Route: 042
     Dates: start: 20050222, end: 20050222
  9. TRASYLOL [Suspect]
     Indication: CARDIOPULMONARY BYPASS
     Dosage: LOADING DOSE, 200ML OVER 30 MINUTES THEN 50ML / HR
     Dates: start: 20050222, end: 20050222
  10. AMIODARONE HCL [Concomitant]
     Dosage: UNK
     Route: 042
     Dates: start: 20050222
  11. LIPITOR [Concomitant]
     Dosage: 10 MG, QD
     Route: 048
  12. DOPAMINE HCL [Concomitant]
     Dosage: UNK
     Route: 042
     Dates: start: 20050222
  13. TYLENOL REGULAR [Concomitant]
     Dosage: UNK UNK, PRN
     Route: 048

REACTIONS (10)
  - RENAL IMPAIRMENT [None]
  - RENAL FAILURE ACUTE [None]
  - UNEVALUABLE EVENT [None]
  - EMOTIONAL DISTRESS [None]
  - ANXIETY [None]
  - FEAR [None]
  - PAIN [None]
  - STRESS [None]
  - RENAL FAILURE [None]
  - RENAL INJURY [None]
